FAERS Safety Report 10948885 (Version 2)
Quarter: 2015Q2

REPORT INFORMATION
  Report Type: Spontaneous
  Country: US (occurrence: US)
  Receive Date: 20150324
  Receipt Date: 20150501
  Transmission Date: 20150821
  Serious: Yes (Other)
  Sender: FDA-Public Use
  Company Number: US-PFIZER INC-2015097361

PATIENT
  Age: 75 Year
  Sex: Female
  Weight: 82 kg

DRUGS (3)
  1. XALATAN [Suspect]
     Active Substance: LATANOPROST
     Dosage: 1 DROP IN EACH EYE, ONCE A DAY
     Route: 047
     Dates: start: 201501
  2. OMEGA 3 [Concomitant]
     Active Substance: OMEGA-3 FATTY ACIDS
     Dosage: UNK
  3. VITAMIN D [Concomitant]
     Active Substance: CHOLECALCIFEROL
     Dosage: UNK

REACTIONS (1)
  - Intraocular pressure increased [Not Recovered/Not Resolved]
